FAERS Safety Report 13212412 (Version 2)
Quarter: 2019Q4

REPORT INFORMATION
  Report Type: Spontaneous
  Country: US (occurrence: US)
  Receive Date: 20170210
  Receipt Date: 20191108
  Transmission Date: 20200122
  Serious: Yes (Other)
  Sender: FDA-Public Use
  Company Number: US-PFIZER INC-2017061073

PATIENT
  Age: 52 Year
  Sex: Male

DRUGS (3)
  1. VIAGRA [Suspect]
     Active Substance: SILDENAFIL CITRATE
     Dosage: 0.5 DF, UNK (100 MG, HALF TABLET ONE TO TWO PER WEEK)
     Route: 048
     Dates: start: 20020910, end: 200508
  2. VIAGRA [Suspect]
     Active Substance: SILDENAFIL CITRATE
     Indication: ERECTILE DYSFUNCTION
     Dosage: UNK
     Route: 048
     Dates: start: 200102, end: 200507
  3. VIAGRA [Suspect]
     Active Substance: SILDENAFIL CITRATE
     Dosage: 0.5 DF, UNK (100 MG, HALF TABLET ONE TO TWO PER WEEK)
     Route: 048
     Dates: start: 20010222, end: 200111

REACTIONS (4)
  - Malignant melanoma in situ [Unknown]
  - Anxiety [Not Recovered/Not Resolved]
  - Emotional distress [Unknown]
  - Fear [Unknown]

NARRATIVE: CASE EVENT DATE: 20041112
